FAERS Safety Report 5464361-7 (Version None)
Quarter: 2007Q3

REPORT INFORMATION
  Report Type: 
  Country: None (occurrence: None)
  Receive Date: 20070921
  Receipt Date: 20070913
  Transmission Date: 20080115
  Serious: Yes (Hospitalization, Other)
  Sender: FDA-Public Use
  Company Number: GR-MERCK-0709GRC00003

PATIENT
  Sex: Male

DRUGS (1)
  1. CRIXIVAN [Suspect]
     Indication: HIV TEST POSITIVE
     Route: 048

REACTIONS (4)
  - BLOOD CREATININE INCREASED [None]
  - BLOOD UREA INCREASED [None]
  - CALCULUS URINARY [None]
  - RENAL FAILURE ACUTE [None]
